FAERS Safety Report 5062423-X (Version None)
Quarter: 2006Q3

REPORT INFORMATION
  Report Type: 
  Country: None (occurrence: None)
  Receive Date: 20060721
  Receipt Date: 20060707
  Transmission Date: 20061208
  Serious: Yes (Other)
  Sender: FDA-Public Use
  Company Number: NIASPAN200501PUNCH-2

PATIENT
  Age: 57 Year
  Sex: Male

DRUGS (3)
  1. NIASPAN [Suspect]
     Indication: DYSLIPIDAEMIA
     Dosage: 500 MG QD PO
     Route: 048
     Dates: start: 20060407
  2. NIASPAN [Suspect]
     Indication: HIGH DENSITY LIPOPROTEIN DECREASED
     Dosage: 500 MG QD PO
     Route: 048
     Dates: start: 20060407
  3. SIMVASTATIN [Concomitant]

REACTIONS (5)
  - COLD SWEAT [None]
  - MALAISE [None]
  - OEDEMA PERIPHERAL [None]
  - PRURITUS [None]
  - RASH PRURITIC [None]
